FAERS Safety Report 7267611-X (Version None)
Quarter: 2011Q1

REPORT INFORMATION
  Report Type: 
  Country: None (occurrence: None)
  Receive Date: 20110201
  Receipt Date: 20110126
  Transmission Date: 20110831
  Serious: Yes (Hospitalization)
  Sender: FDA-Public Use
  Company Number: AT-SANOFI-AVENTIS-2011SA002039

PATIENT
  Age: 60 Year
  Sex: Male
  Weight: 106 kg

DRUGS (12)
  1. RILMENIDINE [Concomitant]
     Route: 048
     Dates: start: 20101013
  2. DOCETAXEL [Suspect]
     Indication: GASTRIC CANCER
     Route: 042
     Dates: start: 20101214, end: 20101214
  3. DOCETAXEL [Suspect]
     Route: 042
     Dates: start: 20110104, end: 20110104
  4. NEUROBION FORTE [Concomitant]
     Route: 048
  5. BUCONIF [Concomitant]
     Dates: start: 20101013
  6. GALVUS [Concomitant]
     Route: 048
     Dates: start: 20101110
  7. AVASTIN [Suspect]
     Indication: GASTRIC CANCER
     Route: 042
     Dates: start: 20101214, end: 20101214
  8. AVASTIN [Suspect]
     Route: 042
     Dates: start: 20110104, end: 20110104
  9. NEURONTIN [Concomitant]
     Route: 048
     Dates: start: 20101110
  10. KALIORAL [Concomitant]
     Route: 048
     Dates: start: 20101116
  11. AMLODIPINE [Concomitant]
     Route: 048
     Dates: start: 20101013
  12. AMARYL [Concomitant]
     Route: 048
     Dates: start: 20101102

REACTIONS (3)
  - HYPOPHAGIA [None]
  - DYSPHAGIA [None]
  - OESOPHAGEAL STENOSIS [None]
